FAERS Safety Report 9032265 (Version 1)
Quarter: 2013Q1

REPORT INFORMATION
  Report Type: Report from Study
  Country: JP (occurrence: JP)
  Receive Date: 20130122
  Receipt Date: 20130122
  Transmission Date: 20140127
  Serious: Yes (Other)
  Sender: FDA-Public Use
  Company Number: JP-009507513-2012SP006148

PATIENT
  Age: 70 Year
  Sex: Female
  Weight: 58 kg

DRUGS (14)
  1. PEGINTERFERON ALFA-2B [Suspect]
     Indication: CHRONIC HEPATITIS C
     Dosage: 1.5 ?G/KG, QW
     Route: 058
     Dates: start: 20111216, end: 20120131
  2. PEGINTERFERON ALFA-2B [Suspect]
     Dosage: 0.7 ?G/KG, QW
     Route: 058
     Dates: start: 20120207, end: 20120214
  3. REBETOL [Suspect]
     Indication: CHRONIC HEPATITIS C
     Dosage: 600 MG, QD
     Route: 048
     Dates: start: 20111216, end: 20120104
  4. REBETOL [Suspect]
     Dosage: 400 MG, QD
     Route: 048
     Dates: start: 20120105, end: 20120111
  5. REBETOL [Suspect]
     Dosage: 200 MG, QD
     Route: 048
     Dates: start: 20120112, end: 20120221
  6. TELAVIC [Suspect]
     Indication: CHRONIC HEPATITIS C
     Dosage: 2250 MG, QD
     Route: 048
     Dates: start: 20111216, end: 20111218
  7. TELAVIC [Suspect]
     Dosage: 1500 MG, QD
     Route: 048
     Dates: start: 20111219, end: 20120221
  8. SOLDEM 3 [Concomitant]
     Indication: DECREASED APPETITE
     Dosage: UPDATE (09MAY2012)
     Route: 065
     Dates: start: 20111218
  9. NAUZELIN [Concomitant]
     Indication: NAUSEA
     Dosage: UPDATE (09MAY2012)
     Route: 048
     Dates: start: 20111219, end: 20120227
  10. ALLELOCK [Concomitant]
     Indication: PRURITUS
     Dosage: UPDATE (09MAY2012)
     Route: 048
     Dates: start: 20120207
  11. HIRUDOID [Concomitant]
     Indication: PRURITUS
     Dosage: UPDATE (09MAY2012)
     Route: 065
     Dates: start: 20120207
  12. PAXIL [Concomitant]
     Indication: PRODUCT USED FOR UNKNOWN INDICATION
     Dosage: UPDATE (09MAY2012)
     Route: 048
     Dates: start: 20120207
  13. TAKEPRON [Concomitant]
     Indication: PRODUCT USED FOR UNKNOWN INDICATION
     Dosage: UPDATE (09MAY2012)
     Route: 065
     Dates: start: 20120228
  14. GASCON [Concomitant]
     Indication: PROPHYLAXIS
     Dosage: 120 MG, QD
     Route: 048
     Dates: start: 20111216

REACTIONS (1)
  - Retinal haemorrhage [Recovered/Resolved]
